FAERS Safety Report 17053015 (Version 1)
Quarter: 2019Q4

REPORT INFORMATION
  Report Type: Spontaneous
  Country: US (occurrence: US)
  Receive Date: 20191120
  Receipt Date: 20191120
  Transmission Date: 20200122
  Serious: Yes (Hospitalization)
  Sender: FDA-Public Use
  Company Number: None

PATIENT
  Age: 88 Year
  Sex: Female
  Weight: 68.1 kg

DRUGS (7)
  1. ADVAIR HFA (115/21) [Concomitant]
  2. PANTOPRAZOLE 40 MG [Concomitant]
     Active Substance: PANTOPRAZOLE SODIUM
  3. PRAVASTATIN. [Concomitant]
     Active Substance: PRAVASTATIN
  4. ADEMPAS [Suspect]
     Active Substance: RIOCIGUAT
     Indication: PULMONARY HYPERTENSION
     Route: 048
     Dates: start: 20190912, end: 20191109
  5. GABAPENTIN 300MG [Concomitant]
     Active Substance: GABAPENTIN
  6. TRAMADOL 50MG [Concomitant]
     Active Substance: TRAMADOL
  7. EPLERENONE 50MG [Concomitant]

REACTIONS (3)
  - Peptic ulcer [None]
  - Blood loss anaemia [None]
  - Gastrointestinal haemorrhage [None]

NARRATIVE: CASE EVENT DATE: 20191105
